FAERS Safety Report 8942104 (Version 1)
Quarter: 2012Q4

REPORT INFORMATION
  Report Type: 
  Country: US (occurrence: US)
  Receive Date: 20121130
  Receipt Date: 20121130
  Transmission Date: 20130627
  Serious: Yes (Other)
  Sender: FDA-Public Use
  Company Number: US-GLAXOSMITHKLINE-A1003586A

PATIENT
  Age: 55 Year
  Sex: Female
  Weight: 83.9 kg

DRUGS (2)
  1. FLOLAN [Suspect]
     Indication: PRODUCT USED FOR UNKNOWN INDICATION
     Dosage: 71NGKM Unknown
     Route: 065
     Dates: start: 20001115
  2. LETAIRIS [Concomitant]
     Dosage: 10MG Per day

REACTIONS (1)
  - Lung transplant [Unknown]
